FAERS Safety Report 13502192 (Version 2)
Quarter: 2017Q3

REPORT INFORMATION
  Report Type: Spontaneous
  Country: FR (occurrence: FR)
  Receive Date: 20170502
  Receipt Date: 20170905
  Transmission Date: 20171127
  Serious: Yes (Hospitalization)
  Sender: FDA-Public Use
  Company Number: FR-ACCORD-050797

PATIENT
  Age: 75 Year
  Sex: Male

DRUGS (13)
  1. LERCANIDIPINE [Concomitant]
     Active Substance: LERCANIDIPINE
  2. MOVICOL [Concomitant]
     Active Substance: POLYETHYLENE GLYCOL 3350\POTASSIUM CHLORIDE\SODIUM BICARBONATE\SODIUM CHLORIDE
  3. UVEDOSE [Concomitant]
     Active Substance: CHOLECALCIFEROL
  4. OXYCONTIN [Concomitant]
     Active Substance: OXYCODONE HYDROCHLORIDE
  5. SOLUPRED [Concomitant]
     Active Substance: PREDNISOLONE
  6. MOTILIUM [Concomitant]
     Active Substance: DOMPERIDONE
  7. PARACETAMOL [Concomitant]
     Active Substance: ACETAMINOPHEN
  8. DIFFU K [Concomitant]
     Active Substance: POTASSIUM CHLORIDE
  9. EUPANTOL [Concomitant]
     Active Substance: PANTOPRAZOLE SODIUM
  10. CISPLATIN ACCORD [Suspect]
     Active Substance: CISPLATIN
     Indication: PROSTATE CANCER METASTATIC
     Route: 042
     Dates: start: 20161115, end: 201703
  11. ETOPOSIDE MYLAN [Suspect]
     Active Substance: ETOPOSIDE
     Indication: PROSTATE CANCER METASTATIC
     Route: 042
     Dates: start: 20161215
  12. OXYNORMORO [Concomitant]
     Active Substance: OXYCODONE
  13. CALCIDOSE [Concomitant]
     Active Substance: CALCIUM CARBONATE

REACTIONS (4)
  - Condition aggravated [Recovering/Resolving]
  - Acute kidney injury [Recovering/Resolving]
  - Hypocalcaemia [Not Recovered/Not Resolved]
  - Off label use [Unknown]

NARRATIVE: CASE EVENT DATE: 20170308
